FAERS Safety Report 7141664-1 (Version None)
Quarter: 2010Q4

REPORT INFORMATION
  Report Type: 
  Country: None (occurrence: None)
  Receive Date: 20101207
  Receipt Date: 20101124
  Transmission Date: 20110411
  Serious: Yes (Other)
  Sender: FDA-Public Use
  Company Number: PHHY2010AU75974

PATIENT
  Sex: Female
  Weight: 95 kg

DRUGS (6)
  1. ACLASTA [Suspect]
     Indication: OSTEOPOROSIS
     Dosage: 5 MG
     Route: 042
     Dates: start: 20100913, end: 20100913
  2. OMEPRAZOLE [Concomitant]
     Dosage: 20 MG
  3. ASPIRIN [Concomitant]
     Dosage: 100 MG
  4. ATENOLOL [Concomitant]
     Dosage: 25 MG
  5. LIPITOR [Concomitant]
     Dosage: 10 MG
  6. NORVASC [Concomitant]
     Dosage: 2.5 MG

REACTIONS (3)
  - ATRIAL FIBRILLATION [None]
  - DRUG ADMINISTRATION ERROR [None]
  - UNDERDOSE [None]
